FAERS Safety Report 7603317-2 (Version None)
Quarter: 2011Q3

REPORT INFORMATION
  Report Type: 
  Country: None (occurrence: None)
  Receive Date: 20110712
  Receipt Date: 20110629
  Transmission Date: 20111222
  Serious: Yes (Other)
  Sender: FDA-Public Use
  Company Number: PHHY2011VE59351

PATIENT
  Sex: Female

DRUGS (2)
  1. BENICAR [Concomitant]
     Indication: HYPERTENSION
     Dosage: 20 MG, ONCE A DAY
     Route: 048
     Dates: start: 20101201
  2. ZOLEDRONIC ACID [Suspect]
     Indication: OSTEOPOROSIS
     Dosage: 5 MG, ONCE A YEAR
     Route: 042
     Dates: start: 20110622

REACTIONS (5)
  - INFLAMMATION [None]
  - PAIN IN EXTREMITY [None]
  - BACK PAIN [None]
  - PYREXIA [None]
  - CONJUNCTIVITIS [None]
